FAERS Safety Report 20248425 (Version 2)
Quarter: 2022Q2

REPORT INFORMATION
  Report Type: Spontaneous
  Country: US (occurrence: US)
  Receive Date: 20211229
  Receipt Date: 20220414
  Transmission Date: 20220720
  Serious: No
  Sender: FDA-Public Use
  Company Number: US-PFIZER INC-202101511889

PATIENT
  Age: 61 Year
  Sex: Female

DRUGS (3)
  1. INLYTA [Suspect]
     Active Substance: AXITINIB
     Dosage: 5 MG
     Dates: start: 20210701, end: 2021
  2. INLYTA [Suspect]
     Active Substance: AXITINIB
     Dosage: 1 MG, CYCLIC (5 DAYS ON AND 2 DAYS OFF)
     Dates: start: 20210909
  3. INLYTA [Suspect]
     Active Substance: AXITINIB
     Dosage: 1 MG
     Dates: start: 20220222

REACTIONS (6)
  - Off label use [Unknown]
  - Hepatic enzyme increased [Unknown]
  - Pain [Unknown]
  - Fatigue [Unknown]
  - Nausea [Unknown]
  - Constipation [Unknown]

NARRATIVE: CASE EVENT DATE: 20210101
